FAERS Safety Report 9427481 (Version 1)
Quarter: 2013Q3

REPORT INFORMATION
  Report Type: Report from Study
  Country: US (occurrence: US)
  Receive Date: 20130730
  Receipt Date: 20130730
  Transmission Date: 20140515
  Serious: No
  Sender: FDA-Public Use
  Company Number: US-ABBOTT-12P-163-0966646-00

PATIENT
  Sex: Male
  Weight: 80.36 kg

DRUGS (2)
  1. NIASPAN (COATED) 500MG [Suspect]
     Indication: LIPOPROTEIN (A) INCREASED
     Dosage: 1 IN 1 DAY, AT BED TIME
     Route: 048
  2. SIMVASTATIN [Concomitant]
     Indication: PRODUCT USED FOR UNKNOWN INDICATION

REACTIONS (3)
  - Flushing [Recovered/Resolved]
  - Erythema [Recovered/Resolved]
  - Hyperhidrosis [Recovered/Resolved]
